FAERS Safety Report 8628313 (Version 2)
Quarter: 2012Q4

REPORT INFORMATION
  Report Type: 
  Country: JP (occurrence: JP)
  Receive Date: 20120621
  Receipt Date: 20120919
  Transmission Date: 20130627
  Serious: No
  Sender: FDA-Public Use
  Company Number: PHHY2012JP042908

PATIENT
  Age: 64 Year
  Sex: Male

DRUGS (2)
  1. LAMISIL [Suspect]
     Indication: TINEA INFECTION
     Dosage: 125 mg, QD
     Route: 048
     Dates: start: 20110930
  2. FEBURIC [Suspect]
     Dosage: 20 mg, QD
     Route: 048
     Dates: start: 20111216, end: 20120517

REACTIONS (5)
  - Liver function test abnormal [Recovered/Resolved]
  - Medication error [Unknown]
  - Aspartate aminotransferase increased [None]
  - Alanine aminotransferase increased [None]
  - Gamma-glutamyltransferase increased [None]
